FAERS Safety Report 4462870-0 (Version None)
Quarter: 2004Q3

REPORT INFORMATION
  Report Type: 
  Country: None (occurrence: None)
  Receive Date: 20040927
  Receipt Date: 20040913
  Transmission Date: 20050211
  Serious: Yes (Hospitalization)
  Sender: FDA-Public Use
  Company Number: A-CH2004-07180

PATIENT
  Age: 45 Year
  Sex: Female
  Weight: 51 kg

DRUGS (10)
  1. TRACLEER [Suspect]
     Indication: PULMONARY HYPERTENSION
     Dosage: 125 MG, BID, ORAL
     Route: 048
     Dates: start: 20040607, end: 20040624
  2. TRACLEER [Suspect]
     Dosage: 62.5 MG, BID, ORAL
     Route: 048
     Dates: start: 20040511, end: 20040606
  3. TRACLEER [Suspect]
     Dosage: 62.5 MG, BID, ORAL
     Route: 048
     Dates: start: 20040801
  4. PROGRAF [Suspect]
     Indication: LIVER TRANSPLANT
     Dates: start: 20040624
  5. URSOLVAN-200 (URSODEOXYCHOLIC ACID) [Concomitant]
  6. SUCRALFATE [Concomitant]
  7. PREDNISOLONE [Concomitant]
  8. VALACYCLOVIR HCL [Concomitant]
  9. LEVENOX (HEPARIN-FRACTION, SODIUM SALT) [Concomitant]
  10. SINTROM [Concomitant]

REACTIONS (5)
  - COMPLICATIONS OF TRANSPLANT SURGERY [None]
  - DRUG INTERACTION [None]
  - LIVER FUNCTION TEST ABNORMAL [None]
  - POST PROCEDURAL COMPLICATION [None]
  - PULMONARY HYPERTENSION [None]
